FAERS Safety Report 9536888 (Version 3)
Quarter: 2013Q4

REPORT INFORMATION
  Report Type: Spontaneous
  Country: US (occurrence: US)
  Receive Date: 20130919
  Receipt Date: 20131031
  Transmission Date: 20140711
  Serious: Yes (Other)
  Sender: FDA-Public Use
  Company Number: US-BAYER-2013-112828

PATIENT
  Age: 32 Year
  Sex: Female
  Weight: 54.42 kg

DRUGS (2)
  1. MIRENA [Suspect]
     Indication: CONTRACEPTION
     Dosage: 20 MCG/24HR, CONT
     Route: 015
     Dates: start: 20110303, end: 20111121
  2. VALACICLOVIR [Concomitant]
     Indication: HERPES SIMPLEX
     Dosage: UNK
     Dates: start: 2008

REACTIONS (7)
  - Uterine perforation [None]
  - Pelvic pain [None]
  - Emotional distress [None]
  - Injury [None]
  - Peritoneal adhesions [None]
  - Abdominal adhesions [None]
  - Anxiety [None]
